FAERS Safety Report 24013795 (Version 1)
Quarter: 2024Q2

REPORT INFORMATION
  Report Type: Spontaneous
  Country: JP (occurrence: JP)
  Receive Date: 20240626
  Receipt Date: 20240626
  Transmission Date: 20240715
  Serious: Yes (Other)
  Sender: FDA-Public Use
  Company Number: JP-ASTELLAS-2024JP002053

PATIENT
  Age: 64 Year
  Sex: Male

DRUGS (9)
  1. PROGRAF [Suspect]
     Active Substance: TACROLIMUS
     Indication: Prophylaxis against graft versus host disease
     Dosage: UNK UNK, UNKNOWN FREQ.
     Route: 048
     Dates: start: 202208, end: 20221021
  2. XOSPATA [Suspect]
     Active Substance: GILTERITINIB
     Indication: Acute myeloid leukaemia
     Dosage: UNK UNK, UNKNOWN FREQ.
     Route: 065
     Dates: start: 202204
  3. FLUDARABINE PHOSPHATE [Concomitant]
     Active Substance: FLUDARABINE PHOSPHATE
     Indication: Bone marrow conditioning regimen
     Dosage: UNK UNK, UNKNOWN FREQ.
     Route: 065
     Dates: start: 202208
  4. BUSULFAN [Concomitant]
     Active Substance: BUSULFAN
     Indication: Bone marrow conditioning regimen
     Dosage: UNK UNK, UNKNOWN FREQ.
     Route: 065
     Dates: start: 202208
  5. MYCOPHENOLATE MOFETIL [Concomitant]
     Active Substance: MYCOPHENOLATE MOFETIL
     Indication: Prophylaxis against graft versus host disease
     Dosage: UNK UNK, UNKNOWN FREQ.
     Route: 065
     Dates: start: 202208
  6. PREDNISOLONE [Concomitant]
     Active Substance: PREDNISOLONE
     Indication: Acute graft versus host disease
     Dosage: UNK UNK, UNKNOWN FREQ.
     Route: 065
     Dates: start: 20220829, end: 20230210
  7. PREDNISOLONE [Concomitant]
     Active Substance: PREDNISOLONE
     Indication: Stomatitis
     Dosage: UNK UNK, UNKNOWN FREQ.
     Route: 065
     Dates: start: 202303
  8. PREDNISOLONE [Concomitant]
     Active Substance: PREDNISOLONE
     Indication: Conjunctivitis
  9. LETERMOVIR [Concomitant]
     Active Substance: LETERMOVIR
     Indication: Product used for unknown indication
     Dosage: UNK UNK, UNKNOWN FREQ.
     Route: 065
     Dates: start: 20220903

REACTIONS (1)
  - Cytomegalovirus test positive [Recovered/Resolved]

NARRATIVE: CASE EVENT DATE: 20220905
